FAERS Safety Report 22358076 (Version 1)
Quarter: 2023Q2

REPORT INFORMATION
  Report Type: Report from Study
  Country: US (occurrence: US)
  Receive Date: 20230524
  Receipt Date: 20230524
  Transmission Date: 20230721
  Serious: Yes (Hospitalization)
  Sender: FDA-Public Use
  Company Number: US-ABBVIE-5177717

PATIENT
  Sex: Female

DRUGS (1)
  1. HUMIRA [Suspect]
     Active Substance: ADALIMUMAB
     Indication: Psoriasis
     Dosage: CITRATE FREE
     Route: 058
     Dates: start: 20210415

REACTIONS (5)
  - Pleurisy [Recovered/Resolved with Sequelae]
  - Pneumonia [Unknown]
  - Lung abscess [Unknown]
  - Pneumonia legionella [Recovered/Resolved with Sequelae]
  - Lung disorder [Recovered/Resolved with Sequelae]
